FAERS Safety Report 23322501 (Version 1)
Quarter: 2023Q4

REPORT INFORMATION
  Report Type: Spontaneous
  Country: US (occurrence: None)
  Receive Date: 20231220
  Receipt Date: 20231220
  Transmission Date: 20240110
  Serious: Yes (Hospitalization)
  Sender: FDA-Public Use
  Company Number: None

PATIENT

DRUGS (2)
  1. LEVOFLOXACIN [Suspect]
     Active Substance: LEVOFLOXACIN
  2. LINEZOLID [Suspect]
     Active Substance: LINEZOLID

REACTIONS (6)
  - Wrong product stored [None]
  - Product dispensing error [None]
  - Product name confusion [None]
  - Product name confusion [None]
  - Product label confusion [None]
  - Product packaging confusion [None]
